FAERS Safety Report 16159372 (Version 1)
Quarter: 2019Q2

REPORT INFORMATION
  Report Type: Spontaneous
  Country: DE (occurrence: DE)
  Receive Date: 20190404
  Receipt Date: 20190404
  Transmission Date: 20190711
  Serious: Yes (Other)
  Sender: FDA-Public Use
  Company Number: DE-BAYER-2019-066528

PATIENT
  Age: 33 Year
  Sex: Female
  Weight: 94 kg

DRUGS (1)
  1. KYLEENA [Suspect]
     Active Substance: LEVONORGESTREL
     Dosage: 17.5 MCG/24HR, CONT
     Dates: start: 20180801

REACTIONS (1)
  - Mastitis [None]

NARRATIVE: CASE EVENT DATE: 20190118
